FAERS Safety Report 25239259 (Version 1)
Quarter: 2025Q2

REPORT INFORMATION
  Report Type: Spontaneous
  Country: GB (occurrence: None)
  Receive Date: 20250424
  Receipt Date: 20250424
  Transmission Date: 20250717
  Serious: Yes (Disabling)
  Sender: FDA-CTU
  Company Number: None

PATIENT
  Age: 24 Year
  Sex: Male
  Weight: 82 kg

DRUGS (1)
  1. CITALOPRAM [Suspect]
     Active Substance: CITALOPRAM
     Indication: Mental disorder
     Dates: start: 20190601, end: 20221101

REACTIONS (12)
  - Sexual dysfunction [None]
  - Quality of life decreased [None]
  - Memory impairment [None]
  - Disturbance in attention [None]
  - Brain fog [None]
  - Fatigue [None]
  - Anhedonia [None]
  - Bladder disorder [None]
  - Abdominal discomfort [None]
  - Premature ejaculation [None]
  - Anorgasmia [None]
  - Sexual dysfunction [None]

NARRATIVE: CASE EVENT DATE: 20221101
